FAERS Safety Report 11126300 (Version 1)
Quarter: 2015Q2

REPORT INFORMATION
  Report Type: Spontaneous
  Country: GB (occurrence: GB)
  Receive Date: 20150520
  Receipt Date: 20150520
  Transmission Date: 20150821
  Serious: Yes (Other)
  Sender: FDA-Public Use
  Company Number: GB-TEVA-563210ACC

PATIENT
  Age: 12 Year

DRUGS (1)
  1. CO-AMOXICLAV [Suspect]
     Active Substance: AMOXICILLIN\CLAVULANIC ACID

REACTIONS (4)
  - Pain [Unknown]
  - Extravasation [Unknown]
  - Erythema [Unknown]
  - Peripheral swelling [Unknown]
